FAERS Safety Report 5163332-8 (Version None)
Quarter: 2006Q4

REPORT INFORMATION
  Report Type: 
  Country: None (occurrence: None)
  Receive Date: 20061124
  Receipt Date: 20061116
  Transmission Date: 20070319
  Serious: No
  Sender: FDA-Public Use
  Company Number: US-2006-028306

PATIENT
  Age: 29 Year
  Sex: Female
  Weight: 74 kg

DRUGS (1)
  1. YAZ [Suspect]
     Dosage: 1 TAB (S), 1X/DAY, ORAL
     Route: 048
     Dates: start: 20060701, end: 20060901

REACTIONS (4)
  - ANXIETY [None]
  - ARRHYTHMIA [None]
  - PALPITATIONS [None]
  - THYROXINE FREE DECREASED [None]
